FAERS Safety Report 18249963 (Version 3)
Quarter: 2020Q4

REPORT INFORMATION
  Report Type: Spontaneous
  Country: GB (occurrence: GB)
  Receive Date: 20200909
  Receipt Date: 20201019
  Transmission Date: 20210113
  Serious: Yes (Hospitalization, Other)
  Sender: FDA-Public Use
  Company Number: GB-MYLANLABS-2020M1076910

PATIENT
  Age: 46 Year
  Sex: Female

DRUGS (2)
  1. CLOZARIL [Suspect]
     Active Substance: CLOZAPINE
     Dosage: 250 MILLIGRAM
     Route: 048
     Dates: start: 20200902
  2. CLOZARIL [Suspect]
     Active Substance: CLOZAPINE
     Indication: SCHIZOPHRENIA
     Dosage: UNK
     Route: 048
     Dates: start: 20190329, end: 20200901

REACTIONS (7)
  - Schizophrenia [Unknown]
  - Refusal of examination [Unknown]
  - Neutropenia [Not Recovered/Not Resolved]
  - Aggression [Unknown]
  - Malaise [Unknown]
  - White blood cell count decreased [Not Recovered/Not Resolved]
  - Product administration error [Unknown]

NARRATIVE: CASE EVENT DATE: 20200803
